FAERS Safety Report 17222269 (Version 1)
Quarter: 2020Q1

REPORT INFORMATION
  Report Type: Spontaneous
  Country: US (occurrence: US)
  Receive Date: 20191231
  Receipt Date: 20191231
  Transmission Date: 20200409
  Serious: Yes (Life-Threatening)
  Sender: FDA-Public Use
  Company Number: None

PATIENT
  Age: 71 Year
  Sex: Female
  Weight: 78.3 kg

DRUGS (6)
  1. CARDURA 5 MG/D, [Concomitant]
  2. VIT D3 1000 U/D [Concomitant]
  3. OLMESARTAN HCTX 20-12.5 MG [Suspect]
     Active Substance: HYDROCHLOROTHIAZIDE\OLMESARTAN MEDOXOMIL
     Indication: HYPERTENSION
     Dosage: ?          QUANTITY:30 TABLET(S);?
     Route: 048
     Dates: start: 20191128, end: 20191218
  4. TYLENOL [Concomitant]
     Active Substance: ACETAMINOPHEN
  5. SYNTHYROID 0.125 MCG [Concomitant]
  6. CLONIDINE 0.2 MG [Concomitant]

REACTIONS (5)
  - Palpitations [None]
  - Insomnia [None]
  - Hypertension [None]
  - Visual impairment [None]
  - Diarrhoea [None]

NARRATIVE: CASE EVENT DATE: 20191130
